FAERS Safety Report 7051806-4 (Version None)
Quarter: 2010Q4

REPORT INFORMATION
  Report Type: 
  Country: None (occurrence: None)
  Receive Date: 20101012
  Receipt Date: 20101004
  Transmission Date: 20110411
  Serious: Yes (Other)
  Sender: FDA-Public Use
  Company Number: 2010US003546

PATIENT
  Age: 58 Year
  Sex: Female
  Weight: 95 kg

DRUGS (25)
  1. PROGRAF [Suspect]
     Indication: RENAL TRANSPLANT
     Dosage: 1 MG, UID/QD, ORAL
     Route: 048
     Dates: start: 20080327
  2. AMLODIPINE [Concomitant]
  3. VITAMIN D (COLECALCIFEROL) [Concomitant]
  4. VITAMIN A [Concomitant]
  5. VITAMIN E [Concomitant]
  6. ASPIRIN [Concomitant]
  7. FISH OIL (FISH OIL) [Concomitant]
  8. METOPROLOL SUCCINATE [Concomitant]
  9. PREDNISONE [Concomitant]
  10. LYRICA [Concomitant]
  11. BACTRIM [Concomitant]
  12. PANTOPRAZOLE SODIUM [Concomitant]
  13. SIMVASTATIN [Concomitant]
  14. HUMALOG [Concomitant]
  15. LANTUS [Concomitant]
  16. BENADRYL [Concomitant]
  17. FREE STYLE STRIPS [Concomitant]
  18. MYCOPHENOLIC ACID [Concomitant]
  19. NEXIUM IV [Concomitant]
  20. NORVASC [Concomitant]
  21. NOVOLOG [Concomitant]
  22. OMEGA 3 COMPLEX [Concomitant]
  23. TOPROL-XL [Concomitant]
  24. ULTRAM [Concomitant]
  25. SEPTRA [Concomitant]

REACTIONS (2)
  - ANKLE FRACTURE [None]
  - FOOT FRACTURE [None]
